FAERS Safety Report 17621105 (Version 1)
Quarter: 2020Q2

REPORT INFORMATION
  Report Type: Spontaneous
  Country: US (occurrence: US)
  Receive Date: 20200403
  Receipt Date: 20200403
  Transmission Date: 20200713
  Serious: Yes (Other)
  Sender: FDA-Public Use
  Company Number: US-PFIZER INC-2020137443

PATIENT
  Age: 70 Year

DRUGS (3)
  1. INSPRA [Suspect]
     Active Substance: EPLERENONE
     Dosage: UNK
  2. ZARONTIN [Suspect]
     Active Substance: ETHOSUXIMIDE
     Dosage: UNK
  3. ALDACTONE [Suspect]
     Active Substance: SPIRONOLACTONE
     Dosage: UNK

REACTIONS (5)
  - Peripheral swelling [Unknown]
  - Oedema peripheral [Unknown]
  - Prostate cancer [Unknown]
  - Swelling [Unknown]
  - Localised oedema [Unknown]
